FAERS Safety Report 10556869 (Version 2)
Quarter: 2014Q4

REPORT INFORMATION
  Report Type: Spontaneous
  Country: US (occurrence: None)
  Receive Date: 20141029
  Receipt Date: 20141105
  Transmission Date: 20150529
  Serious: Yes (Hospitalization)
  Sender: FDA-Public Use
  Company Number: 20140684

PATIENT
  Age: 14 Year
  Sex: Male

DRUGS (4)
  1. ARIPIPRAZOLE. [Concomitant]
     Active Substance: ARIPIPRAZOLE
  2. FOMEPIZOLE. [Suspect]
     Active Substance: FOMEPIZOLE
     Indication: DRUG THERAPY
     Dosage: 10 MG/KG UNDILUTED
     Route: 042
  3. ALBUTEROL. [Concomitant]
     Active Substance: ALBUTEROL
  4. FOMEPIZOLE. [Suspect]
     Active Substance: FOMEPIZOLE
     Indication: DRUG THERAPY
     Dosage: 1000MG IN 100ML
     Route: 042

REACTIONS (3)
  - Thrombophlebitis superficial [None]
  - Wrong technique in drug usage process [None]
  - Drug administration error [None]
